FAERS Safety Report 14401964 (Version 1)
Quarter: 2018Q1

REPORT INFORMATION
  Report Type: Spontaneous
  Country: US (occurrence: US)
  Receive Date: 20180117
  Receipt Date: 20180117
  Transmission Date: 20180509
  Serious: Yes (Other)
  Sender: FDA-Public Use
  Company Number: US-PFIZER INC-2018017322

PATIENT
  Age: 36 Year
  Sex: Male

DRUGS (1)
  1. VANCOMYCIN HCL [Suspect]
     Active Substance: VANCOMYCIN HYDROCHLORIDE
     Indication: ENDOCARDITIS BACTERIAL
     Dosage: UNK
     Route: 042

REACTIONS (3)
  - Stevens-Johnson syndrome [Recovering/Resolving]
  - Lymphadenopathy [Recovering/Resolving]
  - Hepatitis [Recovering/Resolving]
